FAERS Safety Report 5267077-5 (Version None)
Quarter: 2007Q1

REPORT INFORMATION
  Report Type: 
  Country: None (occurrence: None)
  Receive Date: 20070316
  Receipt Date: 20070306
  Transmission Date: 20070707
  Serious: Yes (Other)
  Sender: FDA-Public Use
  Company Number: US-JNJFOC-20061101411

PATIENT
  Sex: Female
  Weight: 49.9 kg

DRUGS (3)
  1. DURAGESIC-100 [Suspect]
     Indication: PAIN
     Route: 062
  2. TEGRETOL [Concomitant]
     Indication: CONVULSION
     Route: 048
  3. BACLOFEN [Concomitant]
     Route: 048

REACTIONS (8)
  - ANXIETY [None]
  - BACK PAIN [None]
  - DRUG TOXICITY [None]
  - FACET JOINT SYNDROME [None]
  - FALL [None]
  - HYPOAESTHESIA [None]
  - OVARIAN MASS [None]
  - SPINAL COLUMN STENOSIS [None]
